FAERS Safety Report 13687696 (Version 4)
Quarter: 2018Q1

REPORT INFORMATION
  Report Type: Report from Study
  Country: HU (occurrence: HU)
  Receive Date: 20170625
  Receipt Date: 20180206
  Transmission Date: 20180508
  Serious: Yes (Other)
  Sender: FDA-Public Use
  Company Number: PHHY2017HU092786

PATIENT
  Age: 61 Year
  Sex: Female
  Weight: 61 kg

DRUGS (9)
  1. TALLITON [Concomitant]
     Active Substance: CARVEDILOL
     Indication: CARDIAC DISORDER
     Dosage: 0.5 DF, UNK
     Route: 065
  2. TAFINLAR [Suspect]
     Active Substance: DABRAFENIB MESYLATE
     Indication: METASTATIC MALIGNANT MELANOMA
     Dosage: 300 MG, QD
     Route: 048
     Dates: start: 20170323, end: 20170331
  3. MEKINIST [Suspect]
     Active Substance: TRAMETINIB DIMETHYL SULFOXIDE
     Dosage: UNK
     Route: 048
     Dates: start: 20170406
  4. TAFINLAR [Suspect]
     Active Substance: DABRAFENIB MESYLATE
     Dosage: UNK
     Route: 048
     Dates: start: 20170406
  5. XALACOM (LATANOPROST/TIMOLOL) [Concomitant]
     Indication: HYPERTENSIVE ANGIOPATHY
     Dosage: UNK
     Route: 065
  6. AZOPT [Concomitant]
     Active Substance: BRINZOLAMIDE
     Indication: GLAUCOMA
  7. XALACOM (LATANOPROST/TIMOLOL) [Concomitant]
     Indication: GLAUCOMA
  8. AZOPT [Concomitant]
     Active Substance: BRINZOLAMIDE
     Indication: HYPERTENSIVE ANGIOPATHY
     Dosage: UNK
     Route: 065
  9. MEKINIST [Suspect]
     Active Substance: TRAMETINIB DIMETHYL SULFOXIDE
     Indication: METASTATIC MALIGNANT MELANOMA
     Dosage: 2 MG, QD
     Route: 048
     Dates: start: 20170323, end: 20170331

REACTIONS (6)
  - Panniculitis [Recovering/Resolving]
  - Cardiac disorder [Recovering/Resolving]
  - Hyperglycaemia [Recovered/Resolved]
  - Type 1 diabetes mellitus [Recovered/Resolved]
  - Pyrexia [Recovered/Resolved]
  - Hypertensive angiopathy [Recovering/Resolving]

NARRATIVE: CASE EVENT DATE: 20170328
